FAERS Safety Report 13372670 (Version 1)
Quarter: 2017Q1

REPORT INFORMATION
  Report Type: Report from Study
  Country: US (occurrence: US)
  Receive Date: 20170327
  Receipt Date: 20170327
  Transmission Date: 20170429
  Serious: No
  Sender: FDA-Public Use
  Company Number: US-AMGEN-USASL2017043773

PATIENT
  Sex: Male

DRUGS (1)
  1. ENBREL [Suspect]
     Active Substance: ETANERCEPT
     Indication: RHEUMATOID ARTHRITIS
     Dosage: 50 MG, QWK
     Route: 058
     Dates: start: 201608, end: 201703

REACTIONS (10)
  - Cold sweat [Unknown]
  - Vertigo [Recovered/Resolved]
  - Abdominal pain [Recovered/Resolved]
  - Hyperhidrosis [Recovered/Resolved]
  - Tinnitus [Recovered/Resolved]
  - Gastroenteritis viral [Unknown]
  - Retching [Recovered/Resolved]
  - Feeling hot [Recovered/Resolved]
  - Nausea [Unknown]
  - Photophobia [Recovered/Resolved]

NARRATIVE: CASE EVENT DATE: 2017
